FAERS Safety Report 5304980-1 (Version None)
Quarter: 2007Q2

REPORT INFORMATION
  Report Type: 
  Country: None (occurrence: None)
  Receive Date: 20070423
  Receipt Date: 20070412
  Transmission Date: 20071010
  Serious: Yes (Other)
  Sender: FDA-Public Use
  Company Number: TH-PFIZER INC-2007023959

PATIENT
  Age: 44 Year
  Sex: Male

DRUGS (4)
  1. LIPITOR [Suspect]
     Indication: HYPERCHOLESTEROLAEMIA
     Route: 048
  2. NORVASC [Concomitant]
     Route: 048
  3. TRITACE [Concomitant]
     Route: 048
  4. ZITHROMAX [Concomitant]
     Route: 048
     Dates: start: 20070310, end: 20070313

REACTIONS (2)
  - DYSPHONIA [None]
  - VOCAL CORD PARALYSIS [None]
